FAERS Safety Report 20173176 (Version 1)
Quarter: 2021Q4

REPORT INFORMATION
  Report Type: Spontaneous
  Country: GR (occurrence: GR)
  Receive Date: 20211211
  Receipt Date: 20211211
  Transmission Date: 20220304
  Serious: Yes (Other)
  Sender: FDA-Public Use
  Company Number: GR-NOVARTISPH-NVSC2021GR281512

PATIENT
  Age: 23 Year
  Sex: Female

DRUGS (1)
  1. RYDAPT [Suspect]
     Active Substance: MIDOSTAURIN
     Indication: Acute myeloid leukaemia
     Dosage: UNK
     Route: 065

REACTIONS (1)
  - Cardiotoxicity [Recovering/Resolving]
